FAERS Safety Report 12124554 (Version 3)
Quarter: 2016Q1

REPORT INFORMATION
  Report Type: Report from Study
  Country: FR (occurrence: FR)
  Receive Date: 20160229
  Receipt Date: 20160304
  Transmission Date: 20160526
  Serious: Yes (Hospitalization, Other)
  Sender: FDA-Public Use
  Company Number: FR-JNJFOC-20151014896

PATIENT
  Age: 45 Year
  Sex: Male
  Weight: 54 kg

DRUGS (23)
  1. MIKICORT [Suspect]
     Active Substance: BUDESONIDE
     Indication: GRAFT VERSUS HOST DISEASE
     Route: 048
     Dates: start: 20151215, end: 20160110
  2. TMC207 [Suspect]
     Active Substance: BEDAQUILINE
     Indication: MYCOBACTERIAL INFECTION
     Route: 048
     Dates: start: 20151006
  3. TMC207 [Suspect]
     Active Substance: BEDAQUILINE
     Indication: TUBERCULOSIS
     Route: 048
     Dates: start: 20151006
  4. AZITHROMYCINE [Suspect]
     Active Substance: AZITHROMYCIN DIHYDRATE
     Indication: MYCOBACTERIAL INFECTION
     Route: 048
     Dates: start: 20150925
  5. ETHAMBUTOL [Suspect]
     Active Substance: ETHAMBUTOL HYDROCHLORIDE
     Indication: MYCOBACTERIAL INFECTION
     Route: 048
     Dates: start: 20150925
  6. ETHAMBUTOL [Suspect]
     Active Substance: ETHAMBUTOL HYDROCHLORIDE
     Indication: TUBERCULOSIS
     Route: 048
  7. MORPHINE SULFATE. [Concomitant]
     Active Substance: MORPHINE SULFATE
     Route: 065
  8. CLONAZEPAM. [Concomitant]
     Active Substance: CLONAZEPAM
     Route: 065
  9. ONDANSETRON [Concomitant]
     Active Substance: ONDANSETRON
     Route: 065
  10. TMC207 [Suspect]
     Active Substance: BEDAQUILINE
     Indication: TUBERCULOSIS
     Route: 048
     Dates: start: 20150925, end: 20151005
  11. CLOFAZIMINE [Suspect]
     Active Substance: CLOFAZIMINE
     Indication: TUBERCULOSIS
     Route: 048
     Dates: start: 20150925
  12. ETHAMBUTOL [Suspect]
     Active Substance: ETHAMBUTOL HYDROCHLORIDE
     Indication: MYCOBACTERIAL INFECTION
     Route: 048
  13. METHYLPREDNISOLONE. [Concomitant]
     Active Substance: METHYLPREDNISOLONE
     Route: 065
  14. AZITHROMYCINE [Suspect]
     Active Substance: AZITHROMYCIN DIHYDRATE
     Indication: MYCOBACTERIAL INFECTION
     Route: 048
  15. RACECADOTRIL [Concomitant]
     Active Substance: RACECADOTRIL
     Route: 065
  16. MIANSERINE [Concomitant]
     Active Substance: MIANSERIN HYDROCHLORIDE
     Route: 065
  17. CLONAZEPAM. [Concomitant]
     Active Substance: CLONAZEPAM
     Route: 065
  18. ETHAMBUTOL [Suspect]
     Active Substance: ETHAMBUTOL HYDROCHLORIDE
     Indication: TUBERCULOSIS
     Route: 048
     Dates: start: 20150925
  19. TMC207 [Suspect]
     Active Substance: BEDAQUILINE
     Indication: MYCOBACTERIAL INFECTION
     Route: 048
     Dates: start: 20150925, end: 20151005
  20. AZITHROMYCINE [Suspect]
     Active Substance: AZITHROMYCIN DIHYDRATE
     Indication: TUBERCULOSIS
     Route: 048
  21. AZITHROMYCINE [Suspect]
     Active Substance: AZITHROMYCIN DIHYDRATE
     Indication: TUBERCULOSIS
     Route: 048
     Dates: start: 20150925
  22. CLOFAZIMINE [Suspect]
     Active Substance: CLOFAZIMINE
     Indication: MYCOBACTERIAL INFECTION
     Route: 048
     Dates: start: 20150925
  23. DEXAMETHASONE. [Concomitant]
     Active Substance: DEXAMETHASONE
     Indication: GRAFT VERSUS HOST DISEASE
     Route: 042
     Dates: start: 20150924

REACTIONS (8)
  - Papilloedema [Recovering/Resolving]
  - Hepatotoxicity [Recovering/Resolving]
  - Hepatocellular injury [Unknown]
  - Cholestasis [Unknown]
  - Product use issue [Unknown]
  - Off label use [Unknown]
  - Diarrhoea haemorrhagic [Recovered/Resolved]
  - Hemiparesis [Unknown]

NARRATIVE: CASE EVENT DATE: 201509
